FAERS Safety Report 22031427 (Version 1)
Quarter: 2023Q1

REPORT INFORMATION
  Report Type: Report from Study
  Country: PK (occurrence: PK)
  Receive Date: 20230224
  Receipt Date: 20230224
  Transmission Date: 20230418
  Serious: Yes (Other)
  Sender: FDA-Public Use
  Company Number: PK-002147023-NVSC2021PK213740

PATIENT

DRUGS (2)
  1. ASCIMINIB [Suspect]
     Active Substance: ASCIMINIB
     Indication: Product used for unknown indication
     Dosage: 40 MG, BID
     Route: 065
     Dates: start: 202008
  2. ASCIMINIB [Suspect]
     Active Substance: ASCIMINIB
     Dosage: 200 MG, BID
     Route: 065

REACTIONS (1)
  - Gene mutation identification test positive [Unknown]

NARRATIVE: CASE EVENT DATE: 20210801
